FAERS Safety Report 11593322 (Version 1)
Quarter: 2015Q4

REPORT INFORMATION
  Report Type: Spontaneous
  Country: GB (occurrence: GB)
  Receive Date: 20151005
  Receipt Date: 20151005
  Transmission Date: 20160304
  Serious: Yes (Other)
  Sender: FDA-Public Use
  Company Number: GB-AMGEN-GBRSP2015102335

PATIENT
  Age: 73 Year
  Sex: Female

DRUGS (3)
  1. PROLIA [Suspect]
     Active Substance: DENOSUMAB
     Indication: OSTEOPOROSIS
     Dosage: 60 MG, Q6MO
     Route: 065
  2. METHOTREXATE [Concomitant]
     Active Substance: METHOTREXATE
     Dosage: UNK,ONE EVEY OTHER DAY
  3. ERYTHROMYCIN. [Concomitant]
     Active Substance: ERYTHROMYCIN
     Dosage: UNK, THREE DAYS A WEEK

REACTIONS (7)
  - Pain in jaw [Unknown]
  - Tooth disorder [Unknown]
  - Dental prosthesis placement [Unknown]
  - Jaw disorder [Unknown]
  - Lung infection [Unknown]
  - Oral infection [Unknown]
  - Exostosis [Unknown]

NARRATIVE: CASE EVENT DATE: 201412
